FAERS Safety Report 8916356 (Version 1)
Quarter: 2012Q4

REPORT INFORMATION
  Report Type: 
  Country: US (occurrence: US)
  Receive Date: 20121120
  Receipt Date: 20121120
  Transmission Date: 20130627
  Serious: Yes (Hospitalization)
  Sender: FDA-Public Use
  Company Number: US-ELI_LILLY_AND_COMPANY-US201211003331

PATIENT
  Age: 67 Year
  Sex: Female

DRUGS (5)
  1. ALIMTA [Suspect]
     Indication: MESOTHELIOMA
     Dosage: UNK, unknown
  2. ALIMTA [Suspect]
     Dosage: UNK UNK, unknown
     Dates: start: 2011
  3. ALIMTA [Suspect]
     Dosage: 500 mg/m2, every 21 days
     Dates: start: 201210, end: 201210
  4. VITAMIN B12 [Concomitant]
     Indication: SUPPLEMENTATION THERAPY
  5. FOLIC ACID [Concomitant]
     Indication: SUPPLEMENTATION THERAPY

REACTIONS (3)
  - Respiratory distress [Recovered/Resolved]
  - Respiratory distress [Unknown]
  - Pancytopenia [Unknown]
